FAERS Safety Report 6925299-9 (Version None)
Quarter: 2010Q3

REPORT INFORMATION
  Report Type: 
  Country: None (occurrence: None)
  Receive Date: 20100810
  Receipt Date: 20100720
  Transmission Date: 20110219
  Serious: Yes (Other)
  Sender: FDA-Public Use
  Company Number: JPI-P-010861

PATIENT
  Age: 30 Year
  Sex: Female
  Weight: 72.5755 kg

DRUGS (7)
  1. XYREM [Suspect]
     Indication: NARCOLEPSY
     Dosage: , ORAL,  6 GM (3 GM,2 IN 1D),ORAL, 9 GM (4.5 GM,2 IN 1 D),ORAL
     Route: 048
     Dates: start: 20100101, end: 20100101
  2. XYREM [Suspect]
     Indication: NARCOLEPSY
     Dosage: , ORAL,  6 GM (3 GM,2 IN 1D),ORAL, 9 GM (4.5 GM,2 IN 1 D),ORAL
     Route: 048
     Dates: start: 20100330, end: 20100101
  3. XYREM [Suspect]
     Indication: NARCOLEPSY
     Dosage: , ORAL,  6 GM (3 GM,2 IN 1D),ORAL, 9 GM (4.5 GM,2 IN 1 D),ORAL
     Route: 048
     Dates: start: 20100101, end: 20100529
  4. QUETIAPINE FUMARATE [Concomitant]
  5. AMPHETAMINE AND DEXTROAMPHETAMINE SALTS [Concomitant]
  6. BUPROPION HCL [Concomitant]
  7. SERTRALINE HYDROCHLORIDE [Concomitant]

REACTIONS (7)
  - BIPOLAR DISORDER [None]
  - DEREALISATION [None]
  - MAJOR DEPRESSION [None]
  - NAUSEA [None]
  - PARANOIA [None]
  - POLLAKIURIA [None]
  - WEIGHT DECREASED [None]
